FAERS Safety Report 7067589-8 (Version None)
Quarter: 2010Q4

REPORT INFORMATION
  Report Type: 
  Country: None (occurrence: None)
  Receive Date: 20101028
  Receipt Date: 20101022
  Transmission Date: 20110411
  Serious: Yes (Other)
  Sender: FDA-Public Use
  Company Number: FR-BRISTOL-MYERS SQUIBB COMPANY-15348360

PATIENT
  Age: 57 Year
  Sex: Male

DRUGS (4)
  1. SUSTIVA [Suspect]
     Indication: HIV INFECTION
     Dates: start: 20020101, end: 20100101
  2. VIDEX [Suspect]
     Indication: HIV INFECTION
     Dates: start: 20020101, end: 20070101
  3. KALETRA [Suspect]
     Indication: HIV INFECTION
     Dosage: IN 2007, 3 TIMES MRNG AND 3 TIMES IN THE EVNG, IN 2010 AT TIME OF REPORT 2 IN MRNG AND 2 IN EVNG.
     Dates: start: 20020101
  4. ISENTRESS [Concomitant]
     Dosage: IN THE MORNING AND IN THE EVENING.

REACTIONS (3)
  - BLINDNESS [None]
  - NEUROPATHY PERIPHERAL [None]
  - OPTIC NEURITIS [None]
